FAERS Safety Report 26174618 (Version 1)
Quarter: 2025Q4

REPORT INFORMATION
  Report Type: Spontaneous
  Country: US (occurrence: US)
  Receive Date: 20251218
  Receipt Date: 20251218
  Transmission Date: 20260117
  Serious: Yes (Other)
  Sender: ANI
  Company Number: US-ANIPHARMA-2025-US-055151

PATIENT
  Age: 66 Year
  Sex: Female

DRUGS (1)
  1. CORTICOTROPIN [Suspect]
     Active Substance: CORTICOTROPIN
     Indication: Psoriatic arthropathy
     Dosage: 40 UNITS THREE TIMES WEEKLY
     Route: 058

REACTIONS (2)
  - Intestinal resection [Unknown]
  - Diverticulitis [Unknown]
